FAERS Safety Report 9731954 (Version 3)
Quarter: 2014Q1

REPORT INFORMATION
  Report Type: Spontaneous
  Country: US (occurrence: US)
  Receive Date: 20131204
  Receipt Date: 20140130
  Transmission Date: 20141002
  Serious: Yes (Death)
  Sender: FDA-Public Use
  Company Number: US-ASTELLAS-2013US012488

PATIENT
  Age: 59 Year
  Sex: Male

DRUGS (2)
  1. PROGRAF [Suspect]
     Indication: LIVER TRANSPLANT
     Dosage: 0.5 MG, UNKNOWN/D
     Route: 065
     Dates: start: 20100210, end: 20120318
  2. PAIN MEDICATION [Suspect]
     Indication: PAIN
     Dosage: UNK
     Route: 065

REACTIONS (2)
  - Lung neoplasm malignant [Fatal]
  - Hepatic cancer metastatic [Fatal]
